FAERS Safety Report 9410845 (Version 2)
Quarter: 2013Q4

REPORT INFORMATION
  Report Type: Spontaneous
  Country: US (occurrence: US)
  Receive Date: 20130719
  Receipt Date: 20131227
  Transmission Date: 20140711
  Serious: Yes (Hospitalization)
  Sender: FDA-Public Use
  Company Number: US-B.I. PHARMACEUTICALS,INC./RIDGEFIELD-2013-BI-20948BP

PATIENT
  Age: 90 Year
  Sex: Female
  Weight: 57.61 kg

DRUGS (14)
  1. PRADAXA [Suspect]
     Indication: ANTICOAGULANT THERAPY
     Dosage: 300 MG
     Route: 048
     Dates: start: 20110527, end: 20120303
  2. PRADAXA [Suspect]
     Indication: ATRIAL FIBRILLATION
  3. ADCIRCA [Concomitant]
     Dosage: 10 MG
     Route: 048
  4. DIOVAN [Concomitant]
     Dosage: 160 MG
     Route: 048
  5. DITROPAN XL [Concomitant]
     Dosage: 5 MG
     Route: 048
  6. DULCOLAX [Concomitant]
     Route: 048
  7. METOPROLOL [Concomitant]
     Dosage: 100 MG
     Route: 048
  8. MULTAQ [Concomitant]
     Dosage: 400 MG
     Route: 048
  9. NORVASC [Concomitant]
     Dosage: 5 MG
     Route: 048
  10. OMEPRAZOLE [Concomitant]
     Dosage: 40 MG
     Route: 048
  11. SIMVASTATIN [Concomitant]
     Dosage: 20 MG
     Route: 048
  12. VITAMIN D [Concomitant]
     Dosage: 400 MG
     Route: 048
  13. COSOPT [Concomitant]
  14. XALATAN [Concomitant]

REACTIONS (3)
  - Upper gastrointestinal haemorrhage [Unknown]
  - Anaemia [Unknown]
  - Haemorrhagic anaemia [Unknown]
